FAERS Safety Report 16393408 (Version 1)
Quarter: 2019Q3

REPORT INFORMATION
  Report Type: Spontaneous
  Country: US (occurrence: US)
  Receive Date: 20190603
  Receipt Date: 20190603
  Transmission Date: 20191004
  Serious: Yes (Other)
  Sender: FDA-Public Use
  Company Number: None

PATIENT
  Age: 17 Year
  Sex: Female
  Weight: 49.5 kg

DRUGS (2)
  1. FLUOXETINE 15 MG [Concomitant]
  2. METHYLPHENIDATE 36 MG OSM BY TEVA [Suspect]
     Active Substance: METHYLPHENIDATE
     Indication: ATTENTION DEFICIT/HYPERACTIVITY DISORDER
     Dosage: ?          QUANTITY:1 CAPSULE(S);?
     Route: 048
     Dates: start: 20190530, end: 20190602

REACTIONS (3)
  - Abnormal behaviour [None]
  - Speech disorder [None]
  - Product substitution issue [None]

NARRATIVE: CASE EVENT DATE: 20190530
